FAERS Safety Report 9328563 (Version 1)
Quarter: 2013Q2

REPORT INFORMATION
  Report Type: Spontaneous
  Country: US (occurrence: US)
  Receive Date: 20130604
  Receipt Date: 20130604
  Transmission Date: 20140414
  Serious: No
  Sender: FDA-Public Use
  Company Number: US-SANOFI-AVENTIS-2012SA023734

PATIENT
  Age: 73 Year
  Sex: Male

DRUGS (3)
  1. SOLOSTAR [Suspect]
     Indication: DIABETES MELLITUS
     Dates: start: 2011
  2. LANTUS [Suspect]
     Indication: DIABETES MELLITUS
     Dosage: DOSE:22 UNIT(S)
     Route: 058
     Dates: start: 2011
  3. METHYLPREDNISOLONE [Suspect]
     Route: 065
     Dates: start: 20120402

REACTIONS (6)
  - Malaise [Unknown]
  - Dysphonia [Unknown]
  - Respiratory tract congestion [Unknown]
  - Blood glucose increased [Not Recovered/Not Resolved]
  - Drug ineffective [Unknown]
  - Product quality issue [Unknown]
